FAERS Safety Report 11172541 (Version 1)
Quarter: 2015Q2

REPORT INFORMATION
  Report Type: Spontaneous
  Country: US (occurrence: US)
  Receive Date: 20150608
  Receipt Date: 20150608
  Transmission Date: 20150821
  Serious: No
  Sender: FDA-Public Use
  Company Number: US-AMGEN-USASP2015028124

PATIENT
  Age: 63 Year
  Sex: Female

DRUGS (1)
  1. EPOGEN [Suspect]
     Active Substance: ERYTHROPOIETIN
     Indication: CHRONIC KIDNEY DISEASE
     Dosage: UNK UNK, UNK
     Route: 065
     Dates: start: 20130122, end: 20150321

REACTIONS (3)
  - Haematocrit abnormal [Unknown]
  - Haemoglobin abnormal [Unknown]
  - Therapeutic response decreased [Unknown]
